FAERS Safety Report 4611865-2 (Version None)
Quarter: 2005Q2

REPORT INFORMATION
  Report Type: 
  Country: None (occurrence: None)
  Receive Date: 20050308
  Receipt Date: 20050125
  Transmission Date: 20051028
  Serious: Yes (Other)
  Sender: FDA-Public Use
  Company Number: 2005UW01361

PATIENT
  Age: 64 Year
  Sex: Male
  Weight: 92.986 kg

DRUGS (6)
  1. CRESTOR [Suspect]
     Indication: BLOOD CHOLESTEROL INCREASED
     Dosage: 20 MG PO
     Route: 048
     Dates: start: 20041001
  2. FIBROLAXATIVE [Concomitant]
  3. DOXAZOSIN [Concomitant]
  4. ZOLOFT [Concomitant]
  5. HYDROCHLOROTHIAZIDE [Concomitant]
  6. TESTOSTERONE [Concomitant]

REACTIONS (1)
  - EJACULATION FAILURE [None]
